FAERS Safety Report 18828630 (Version 1)
Quarter: 2021Q1

REPORT INFORMATION
  Report Type: Spontaneous
  Country: US (occurrence: US)
  Receive Date: 20210201
  Receipt Date: 20210201
  Transmission Date: 20210419
  Serious: No
  Sender: FDA-Public Use
  Company Number: US-ABBVIE-20K-163-3537191-00

PATIENT

DRUGS (2)
  1. HUMIRA [Suspect]
     Active Substance: ADALIMUMAB
     Indication: PRODUCT USED FOR UNKNOWN INDICATION
     Route: 058
     Dates: end: 202004
  2. XELJANZ [Suspect]
     Active Substance: TOFACITINIB CITRATE
     Indication: COLITIS ULCERATIVE
     Route: 065
     Dates: start: 202005

REACTIONS (7)
  - Diarrhoea [Recovered/Resolved]
  - Dizziness [Unknown]
  - Off label use [Unknown]
  - Ear infection [Unknown]
  - Localised oedema [Unknown]
  - Memory impairment [Unknown]
  - Therapeutic product effect decreased [Unknown]
